FAERS Safety Report 9397597 (Version 1)
Quarter: 2013Q3

REPORT INFORMATION
  Report Type: Spontaneous
  Country: GB (occurrence: GB)
  Receive Date: 20130712
  Receipt Date: 20130712
  Transmission Date: 20140515
  Serious: Yes (Other)
  Sender: FDA-Public Use
  Company Number: GB-PFIZER INC-2013199776

PATIENT
  Sex: Female

DRUGS (1)
  1. GENOTROPIN [Suspect]
     Indication: GROWTH RETARDATION
     Dosage: 7 IU, UNK
     Route: 058
     Dates: start: 201202

REACTIONS (2)
  - Vitiligo [Not Recovered/Not Resolved]
  - Skin depigmentation [Not Recovered/Not Resolved]
